FAERS Safety Report 8064512-4 (Version None)
Quarter: 2012Q1

REPORT INFORMATION
  Report Type: 
  Country: None (occurrence: None)
  Receive Date: 20120123
  Receipt Date: 20120119
  Transmission Date: 20120608
  Serious: Yes (Hospitalization)
  Sender: FDA-Public Use
  Company Number: IT-PFIZER INC-K201101079

PATIENT
  Age: 70 Year
  Sex: Female

DRUGS (7)
  1. DELORAZEPAM [Suspect]
     Indication: MAJOR DEPRESSION
     Dosage: 1 MG, 1X/DAY
     Route: 048
     Dates: start: 20100101, end: 20110503
  2. RAMIPRIL [Suspect]
     Dosage: UNK
     Route: 048
     Dates: start: 20100101, end: 20110503
  3. VYTORIN [Suspect]
     Indication: HYPERCHOLESTEROLAEMIA
     Dosage: UNK
     Route: 048
     Dates: start: 20100101, end: 20110503
  4. PAROXETINE [Suspect]
     Indication: MAJOR DEPRESSION
     Dosage: 20 MG, 1X/DAY
     Route: 048
     Dates: start: 20110423, end: 20110503
  5. HYDROCHLOROTHIAZIDE [Suspect]
     Indication: ESSENTIAL HYPERTENSION
     Dosage: UNK
     Route: 048
     Dates: start: 20100101, end: 20110503
  6. FEXOFENADINE HCL [Suspect]
     Indication: HYPERSENSITIVITY
     Dosage: 120 MG, 1X/DAY
     Route: 048
     Dates: start: 20100101, end: 20110503
  7. ATENOLOL [Suspect]
     Indication: SECONDARY HYPERTENSION
     Dosage: 100 MG, 1X/DAY
     Route: 048
     Dates: start: 20100101, end: 20110503

REACTIONS (9)
  - STEREOTYPY [None]
  - SOPOR [None]
  - RETROGRADE AMNESIA [None]
  - AGITATION [None]
  - BLOOD ELECTROLYTES DECREASED [None]
  - DISORIENTATION [None]
  - MENTAL STATUS CHANGES [None]
  - APRAXIA [None]
  - HYPOKINESIA [None]
